FAERS Safety Report 12826724 (Version 1)
Quarter: 2016Q4

REPORT INFORMATION
  Report Type: Spontaneous
  Country: US (occurrence: US)
  Receive Date: 20161007
  Receipt Date: 20161007
  Transmission Date: 20170207
  Serious: No
  Sender: FDA-Public Use
  Company Number: US-WATSON-2016-09689

PATIENT
  Sex: Female

DRUGS (6)
  1. TOPAMAX [Concomitant]
     Active Substance: TOPIRAMATE
     Indication: PRODUCT USED FOR UNKNOWN INDICATION
     Dosage: UNK, UNKNOWN
     Route: 065
  2. SINGULAIR [Concomitant]
     Active Substance: MONTELUKAST SODIUM
     Indication: PRODUCT USED FOR UNKNOWN INDICATION
     Dosage: UNK, UNKNOWN
     Route: 065
  3. NEXIUM [Concomitant]
     Active Substance: ESOMEPRAZOLE MAGNESIUM
     Indication: PRODUCT USED FOR UNKNOWN INDICATION
     Dosage: UNK, UNKNOWN
     Route: 065
  4. FENTANYL-50 (WATSON LABORATORIES) [Suspect]
     Active Substance: FENTANYL
     Indication: PAIN
     Dosage: 50 ?G, Q1H
     Route: 062
  5. TRAMADOL. [Concomitant]
     Active Substance: TRAMADOL
     Indication: BREAKTHROUGH PAIN
     Dosage: UNK, UNKNOWN
     Route: 065
  6. SYNTHROID [Concomitant]
     Active Substance: LEVOTHYROXINE SODIUM
     Indication: PRODUCT USED FOR UNKNOWN INDICATION
     Dosage: UNK, UNKNOWN
     Route: 065

REACTIONS (6)
  - Drug dose omission [Recovered/Resolved]
  - Insomnia [Recovered/Resolved]
  - Sneezing [Recovered/Resolved]
  - Drug effect incomplete [Recovered/Resolved]
  - Withdrawal syndrome [Recovered/Resolved]
  - Sensory disturbance [Recovered/Resolved]
